FAERS Safety Report 8927999 (Version 1)
Quarter: 2012Q4

REPORT INFORMATION
  Report Type: Spontaneous
  Country: US (occurrence: None)
  Receive Date: 20121126
  Receipt Date: 20121126
  Transmission Date: 20130627
  Serious: Yes (Other)
  Sender: FDA-Public Use
  Company Number: None

PATIENT
  Age: 70 Year
  Sex: Female
  Weight: 79.38 kg

DRUGS (1)
  1. ZOLPIDEM TARTRATE [Suspect]
     Indication: INSOMNIA
     Dosage: at bedtime
     Route: 048
     Dates: start: 20120829, end: 20121101

REACTIONS (5)
  - Diarrhoea [None]
  - Insomnia [None]
  - Renal impairment [None]
  - Functional gastrointestinal disorder [None]
  - Product substitution issue [None]
